FAERS Safety Report 7637025-9 (Version None)
Quarter: 2011Q3

REPORT INFORMATION
  Report Type: 
  Country: None (occurrence: None)
  Receive Date: 20110726
  Receipt Date: 20110720
  Transmission Date: 20111222
  Serious: Yes (Other)
  Sender: FDA-Public Use
  Company Number: JP-PFIZER INC-2011159029

PATIENT
  Age: 40 Year
  Sex: Male
  Weight: 60 kg

DRUGS (5)
  1. SPIRONOLACTONE [Concomitant]
     Indication: POLYURIA
     Dosage: UNK
  2. LASIX [Concomitant]
     Indication: POLYURIA
     Dosage: UNK
  3. ZYVOX [Suspect]
     Indication: STAPHYLOCOCCAL INFECTION
     Dosage: 1200 MG, 1X/DAY
     Route: 041
     Dates: start: 20110520, end: 20110523
  4. TRICHLORMETHIAZIDE [Concomitant]
     Indication: POLYURIA
     Dosage: UNK
  5. ZYVOX [Suspect]
     Dosage: 1200 MG, 1X/DAY
     Route: 048
     Dates: start: 20110524, end: 20110528

REACTIONS (2)
  - HYPONATRAEMIA [None]
  - WEIGHT INCREASED [None]
